FAERS Safety Report 4828493-6 (Version None)
Quarter: 2005Q4

REPORT INFORMATION
  Report Type: 
  Country: None (occurrence: None)
  Receive Date: 20051115
  Receipt Date: 20051026
  Transmission Date: 20060501
  Serious: Yes (Death, Hospitalization)
  Sender: FDA-Public Use
  Company Number: JP-ROCHE-422587

PATIENT
  Age: 66 Year
  Sex: Male

DRUGS (1)
  1. PANALDINE [Suspect]
     Indication: THROMBOSIS PROPHYLAXIS
     Dosage: OTHER INDICATION: CORONARY STENT PLACEMENT.
     Route: 048
     Dates: start: 20050920, end: 20051015

REACTIONS (4)
  - ACUTE MYOCARDIAL INFARCTION [None]
  - HAEMATEMESIS [None]
  - HAEMATURIA [None]
  - THROMBOTIC THROMBOCYTOPENIC PURPURA [None]
